FAERS Safety Report 14855890 (Version 6)
Quarter: 2020Q4

REPORT INFORMATION
  Report Type: Spontaneous
  Country: US (occurrence: US)
  Receive Date: 20180507
  Receipt Date: 20201223
  Transmission Date: 20210113
  Serious: Yes (Other)
  Sender: FDA-Public Use
  Company Number: US-PFIZER INC-2018181182

PATIENT
  Age: 6 Year
  Sex: Male
  Weight: 18 kg

DRUGS (5)
  1. METADATE ER [Concomitant]
     Active Substance: METHYLPHENIDATE HYDROCHLORIDE
     Indication: ATTENTION DEFICIT HYPERACTIVITY DISORDER
     Dosage: 30 MG, DAILY
     Route: 048
     Dates: start: 2018
  2. GENOTROPIN [Suspect]
     Active Substance: SOMATROPIN
     Indication: SHORT STATURE
     Dosage: 0.8 MG, DAILY
     Route: 058
  3. GENOTROPIN [Suspect]
     Active Substance: SOMATROPIN
     Dosage: 0.6 MG
     Dates: start: 2016
  4. GENOTROPIN [Suspect]
     Active Substance: SOMATROPIN
     Dosage: 1 MG, DAILY
     Route: 058
     Dates: start: 201605
  5. RITALIN [Concomitant]
     Active Substance: METHYLPHENIDATE HYDROCHLORIDE
     Indication: ATTENTION DEFICIT HYPERACTIVITY DISORDER
     Dosage: 10 MG, AS NEEDED
     Route: 048
     Dates: start: 2018

REACTIONS (4)
  - Upper limb fracture [Unknown]
  - Device information output issue [Unknown]
  - Migraine [Recovered/Resolved]
  - Device use error [Unknown]

NARRATIVE: CASE EVENT DATE: 2016
